FAERS Safety Report 7936083-1 (Version None)
Quarter: 2011Q4

REPORT INFORMATION
  Report Type: 
  Country: None (occurrence: None)
  Receive Date: 20111123
  Receipt Date: 20111119
  Transmission Date: 20120403
  Serious: Yes (Death, Hospitalization)
  Sender: FDA-Public Use
  Company Number: US-SHIRE-ALL1-2011-04581

PATIENT
  Sex: Male
  Weight: 99.773 kg

DRUGS (2)
  1. FOSRENOL [Suspect]
     Indication: HYPERPHOSPHATAEMIA
     Dosage: 2000 MG, 3X/DAY:TID (WITH EACH MEAL)
     Route: 048
     Dates: start: 20100101
  2. FOSRENOL [Suspect]
     Dosage: 1000 MG, OTHER (WITH EACH SNACK)
     Route: 048
     Dates: start: 20100101

REACTIONS (5)
  - MEDICAL DEVICE COMPLICATION [None]
  - OBSTRUCTION GASTRIC [None]
  - CARDIAC DISORDER [None]
  - DEATH [None]
  - OVERDOSE [None]
